FAERS Safety Report 9050597 (Version 2)
Quarter: 2013Q1

REPORT INFORMATION
  Report Type: Spontaneous
  Country: IN (occurrence: IN)
  Receive Date: 20130205
  Receipt Date: 20130206
  Transmission Date: 20140127
  Serious: Yes (Death)
  Sender: FDA-Public Use
  Company Number: IN-009507513-1302IND000778

PATIENT
  Age: 59 Year
  Sex: Male

DRUGS (2)
  1. INTRONA [Suspect]
  2. REBETOL [Suspect]

REACTIONS (1)
  - Death [Fatal]
